FAERS Safety Report 9554038 (Version 2)
Quarter: 2013Q4

REPORT INFORMATION
  Report Type: Spontaneous
  Country: JP (occurrence: JP)
  Receive Date: 20130925
  Receipt Date: 20131105
  Transmission Date: 20140711
  Serious: Yes (Hospitalization)
  Sender: FDA-Public Use
  Company Number: JP-VIIV HEALTHCARE LIMITED-B0924863A

PATIENT
  Age: 4 Decade
  Sex: Female

DRUGS (9)
  1. COMBIVIR [Suspect]
     Indication: HIV INFECTION
     Route: 048
  2. EPZICOM [Suspect]
     Indication: HIV INFECTION
     Route: 048
  3. TRUVADA [Concomitant]
     Indication: HIV INFECTION
     Route: 048
  4. PREZISTA NAIVE [Concomitant]
     Indication: HIV INFECTION
     Route: 048
  5. NORVIR [Concomitant]
     Indication: HIV INFECTION
     Route: 048
  6. KALETRA [Concomitant]
     Indication: HIV INFECTION
     Route: 048
  7. ISENTRESS [Concomitant]
     Indication: HIV INFECTION
     Route: 048
  8. UNKNOWN DRUG [Concomitant]
     Indication: RHEUMATOID ARTHRITIS
     Route: 065
  9. PREDNISOLONE [Concomitant]
     Indication: RHEUMATOID ARTHRITIS
     Route: 048

REACTIONS (5)
  - Caesarean section [Unknown]
  - Vomiting [Unknown]
  - Threatened labour [Unknown]
  - Live birth [Unknown]
  - Haemoglobin decreased [Unknown]
